FAERS Safety Report 10089223 (Version 1)
Quarter: 2014Q2

REPORT INFORMATION
  Report Type: Other
  Country: GB (occurrence: GB)
  Receive Date: 20140421
  Receipt Date: 20140421
  Transmission Date: 20141212
  Serious: Yes (Other)
  Sender: FDA-Public Use
  Company Number: GB-TARO PHARMACEUTICALS U.S.A., INC-2014SUN00844

PATIENT
  Age: 81 Year
  Sex: Female

DRUGS (2)
  1. WARFARIN [Suspect]
     Indication: CEREBROVASCULAR ACCIDENT PROPHYLAXIS
     Route: 065
  2. DAKTARIN [Suspect]
     Indication: ORAL CANDIDIASIS
     Dosage: 5 ML, QID
     Route: 061
     Dates: start: 201402, end: 201403

REACTIONS (3)
  - Prothrombin time prolonged [Recovering/Resolving]
  - Drug interaction [Unknown]
  - International normalised ratio increased [Recovering/Resolving]
